FAERS Safety Report 22010334 (Version 1)
Quarter: 2023Q1

REPORT INFORMATION
  Report Type: Other
  Country: CA (occurrence: None)
  Receive Date: 20230220
  Receipt Date: 20230220
  Transmission Date: 20230418
  Serious: Yes (Other)
  Sender: FDA-Public Use
  Company Number: CA-ROCHE-1139240

PATIENT
  Age: 44 Year
  Sex: Female
  Weight: 113.50 kg

DRUGS (11)
  1. ACTEMRA [Suspect]
     Active Substance: TOCILIZUMAB
     Indication: Rheumatoid arthritis
     Route: 042
     Dates: start: 20120926, end: 2018
  2. ACTEMRA [Suspect]
     Active Substance: TOCILIZUMAB
     Route: 042
     Dates: start: 20121026
  3. ACTEMRA [Suspect]
     Active Substance: TOCILIZUMAB
     Route: 042
     Dates: start: 20140509
  4. ACTEMRA [Suspect]
     Active Substance: TOCILIZUMAB
     Indication: Rheumatoid arthritis
     Route: 058
     Dates: start: 20180725
  5. FOLIC ACID [Concomitant]
     Active Substance: FOLIC ACID
  6. FLURBIPROFEN [Concomitant]
     Active Substance: FLURBIPROFEN
     Indication: Rheumatoid arthritis
     Route: 048
  7. LYRICA [Concomitant]
     Active Substance: PREGABALIN
  8. METHOTREXATE [Concomitant]
     Active Substance: METHOTREXATE
     Indication: Rheumatoid arthritis
     Route: 058
  9. EFFEXOR [Concomitant]
     Active Substance: VENLAFAXINE HYDROCHLORIDE
  10. GABAPENTIN [Concomitant]
     Active Substance: GABAPENTIN
  11. EMTEC 30 [Concomitant]

REACTIONS (20)
  - Cellulitis [Recovered/Resolved]
  - Foot fracture [Unknown]
  - Heavy menstrual bleeding [Recovering/Resolving]
  - Headache [Recovered/Resolved]
  - Hyperhidrosis [Recovered/Resolved]
  - Urticaria [Recovering/Resolving]
  - Gastroenteritis viral [Recovered/Resolved]
  - Extravasation [Recovered/Resolved]
  - Vascular access site rash [Recovered/Resolved]
  - Vascular access site vesicles [Recovered/Resolved]
  - Catheter site swelling [Recovered/Resolved]
  - Vascular access site pruritus [Recovered/Resolved]
  - Nasopharyngitis [Not Recovered/Not Resolved]
  - Precancerous cells present [Unknown]
  - Weight decreased [Unknown]
  - Depression [Not Recovered/Not Resolved]
  - Headache [Not Recovered/Not Resolved]
  - Malaise [Unknown]
  - Road traffic accident [Unknown]
  - Wound [Unknown]

NARRATIVE: CASE EVENT DATE: 20120926
